FAERS Safety Report 21159675 (Version 2)
Quarter: 2023Q1

REPORT INFORMATION
  Report Type: Spontaneous
  Country: US (occurrence: US)
  Receive Date: 20220802
  Receipt Date: 20230306
  Transmission Date: 20230417
  Serious: No
  Sender: FDA-Public Use
  Company Number: US-BRISTOL-MYERS SQUIBB COMPANY-2022-078665

PATIENT
  Age: 82 Year
  Sex: Male
  Weight: 71.8 kg

DRUGS (11)
  1. REVLIMID [Suspect]
     Active Substance: LENALIDOMIDE
     Indication: Plasma cell myeloma
     Dosage: DOSE : UNAVAILABLE;     FREQ : ^Q HS FOR 21 DAYS^
     Route: 048
     Dates: start: 20220125
  2. REVLIMID [Suspect]
     Active Substance: LENALIDOMIDE
     Dosage: FREQ: ^Q HS FOR 21 DAYS^
     Route: 048
     Dates: start: 20220125
  3. DEXAMETHASONE [Concomitant]
     Active Substance: DEXAMETHASONE
     Indication: Product used for unknown indication
  4. ACYCLOVIR [Concomitant]
     Active Substance: ACYCLOVIR
     Indication: Product used for unknown indication
  5. ACETAMINOPHEN\ASCORBIC ACID [Concomitant]
     Active Substance: ACETAMINOPHEN\ASCORBIC ACID
     Indication: Product used for unknown indication
  6. CO Q 10 [UBIDECARENONE] [Concomitant]
     Indication: Product used for unknown indication
  7. PROCHLORPERAZINE [PROCHLORPERAZINE MESILATE] [Concomitant]
     Indication: Product used for unknown indication
  8. TAMSULOISIN [Concomitant]
     Indication: Product used for unknown indication
  9. VITAMIN E [HERBAL OIL NOS;TOCOPHEROL] [Concomitant]
     Indication: Product used for unknown indication
  10. VELCADE [Concomitant]
     Active Substance: BORTEZOMIB
     Indication: Product used for unknown indication
  11. DARZALEX [Concomitant]
     Active Substance: DARATUMUMAB
     Indication: Product used for unknown indication

REACTIONS (1)
  - Diarrhoea [Unknown]
